FAERS Safety Report 11235597 (Version 2)
Quarter: 2015Q3

REPORT INFORMATION
  Report Type: Spontaneous
  Country: JP (occurrence: JP)
  Receive Date: 20150702
  Receipt Date: 20150714
  Transmission Date: 20151125
  Serious: Yes (Other)
  Sender: FDA-Public Use
  Company Number: JP-ALLERGAN-1510206US

PATIENT
  Age: 60 Year
  Sex: Female

DRUGS (5)
  1. SANPILO [Concomitant]
     Active Substance: PILOCARPINE HYDROCHLORIDE
  2. ALPHAGAN P [Suspect]
     Active Substance: BRIMONIDINE TARTRATE
     Indication: GLAUCOMA
     Dosage: 1 DROP TWICE A DAY
     Route: 047
     Dates: start: 20141021, end: 20150403
  3. BRONUCK [Concomitant]
     Active Substance: BROMFENAC SODIUM
  4. COSOPT [Concomitant]
     Active Substance: DORZOLAMIDE HYDROCHLORIDE\TIMOLOL MALEATE
     Dosage: UNK
  5. VEGAMOX [Concomitant]
     Active Substance: MOXIFLOXACIN HYDROCHLORIDE

REACTIONS (1)
  - Procedural haemorrhage [Recovered/Resolved]

NARRATIVE: CASE EVENT DATE: 20150403
